FAERS Safety Report 9549433 (Version 1)
Quarter: 2013Q3

REPORT INFORMATION
  Report Type: Spontaneous
  Country: PL (occurrence: None)
  Receive Date: 20130919
  Receipt Date: 20130919
  Transmission Date: 20140515
  Serious: Yes (Hospitalization)
  Sender: FDA-Public Use
  Company Number: 1890357

PATIENT
  Sex: Male
  Weight: 65 kg

DRUGS (1)
  1. DOCETAXEL [Suspect]
     Indication: LUNG NEOPLASM MALIGNANT
     Dates: start: 20120916

REACTIONS (3)
  - Leukopenia [None]
  - C-reactive protein increased [None]
  - Febrile neutropenia [None]
